FAERS Safety Report 5997860-X (Version None)
Quarter: 2008Q4

REPORT INFORMATION
  Report Type: 
  Country: None (occurrence: None)
  Receive Date: 20081212
  Receipt Date: 20081121
  Transmission Date: 20090506
  Serious: No
  Sender: FDA-Public Use
  Company Number: US-ABBOTT-08P-163-0489332-00

PATIENT
  Sex: Female
  Weight: 81.72 kg

DRUGS (4)
  1. HUMIRA [Suspect]
     Indication: PSORIATIC ARTHROPATHY
     Route: 058
     Dates: start: 20071201
  2. PAROXETINE HCL [Concomitant]
     Indication: DEPRESSION
  3. ALPRAZOLAM [Concomitant]
     Indication: DEPRESSION
  4. GABAPENTIN [Concomitant]
     Indication: DEPRESSION

REACTIONS (5)
  - CROHN'S DISEASE [None]
  - DRUG INEFFECTIVE [None]
  - NASOPHARYNGITIS [None]
  - PAIN [None]
  - SINUSITIS [None]
